FAERS Safety Report 5531300-X (Version None)
Quarter: 2007Q4

REPORT INFORMATION
  Report Type: 
  Country: None (occurrence: None)
  Receive Date: 20071128
  Receipt Date: 20071115
  Transmission Date: 20080405
  Serious: Yes (Hospitalization)
  Sender: FDA-Public Use
  Company Number: E2090-00338-SPO-JP

PATIENT
  Age: 30 Year
  Sex: Female

DRUGS (6)
  1. ZONISAMIDE [Suspect]
     Indication: CONVULSION
     Dosage: 800 MG, ORAL
     Route: 048
     Dates: start: 20060107, end: 20060210
  2. FAMOTIDINE [Concomitant]
  3. CEREB(VALPROATE SODIUM) [Concomitant]
  4. LOXONIN(LOXOPROFEN SODIUM) [Concomitant]
  5. MUCOSTA(REBAMIPIDE) [Concomitant]
  6. ZOLPIDEM TARTRATE [Concomitant]

REACTIONS (5)
  - DRUG RASH WITH EOSINOPHILIA AND SYSTEMIC SYMPTOMS [None]
  - HEADACHE [None]
  - HEPATIC FUNCTION ABNORMAL [None]
  - LIVER DISORDER [None]
  - STEVENS-JOHNSON SYNDROME [None]
